FAERS Safety Report 9994540 (Version 2)
Quarter: 2014Q2

REPORT INFORMATION
  Report Type: Spontaneous
  Country: GB (occurrence: GB)
  Receive Date: 20140311
  Receipt Date: 20140523
  Transmission Date: 20141212
  Serious: Yes (Disabling, Other)
  Sender: FDA-Public Use
  Company Number: GB-AMGEN-GBRSP2014016607

PATIENT
  Age: 69 Year
  Sex: Female
  Weight: 79.29 kg

DRUGS (10)
  1. PROLIA [Suspect]
     Indication: OSTEOPENIA
     Dosage: 60 MG, UNK
     Route: 051
     Dates: start: 20131027, end: 20140223
  2. BETAHISTINE [Concomitant]
     Dosage: 16 MG, TID
  3. CETIRIZINE [Concomitant]
     Dosage: 10 MG, QD
  4. CLENIL MODULITE [Concomitant]
     Dosage: 200 MUG, BID
  5. OMEPRAZOLE [Concomitant]
     Dosage: 20 MG, QD
  6. PARACETAMOL [Concomitant]
     Dosage: 500 MG, UNK
  7. SALBUTAMOL                         /00139502/ [Concomitant]
     Dosage: UNK UNK, AS NECESSARY
  8. TEMAZEPAM [Concomitant]
     Dosage: 10 MG, QD
  9. CODEINE PHOSPHATE [Concomitant]
     Dosage: 15 MG, UNK
  10. TOLTERODINE TARTRATE [Concomitant]
     Dosage: 4 MG, QD

REACTIONS (10)
  - Irritable bowel syndrome [Unknown]
  - Painful defaecation [Recovering/Resolving]
  - Proctalgia [Not Recovered/Not Resolved]
  - Rectal haemorrhage [Unknown]
  - Faeces hard [Recovering/Resolving]
  - Dysuria [Recovering/Resolving]
  - Bone pain [Recovering/Resolving]
  - Arthralgia [Not Recovered/Not Resolved]
  - Myalgia [Recovering/Resolving]
  - Constipation [Recovering/Resolving]
